FAERS Safety Report 9472248 (Version 4)
Quarter: 2014Q3

REPORT INFORMATION
  Report Type: Spontaneous
  Country: US (occurrence: US)
  Receive Date: 20130823
  Receipt Date: 20140715
  Transmission Date: 20150326
  Serious: Yes (Hospitalization, Other)
  Sender: FDA-Public Use
  Company Number: US-ASTRAZENECA-2009SE14917

PATIENT
  Age: 80 Year
  Sex: Female
  Weight: 62.1 kg

DRUGS (18)
  1. MAXAIR [Concomitant]
     Active Substance: PIRBUTEROL ACETATE
     Indication: ASTHMA
     Dosage: PRN
     Route: 055
  2. PULMICORT FLEXHALER [Suspect]
     Active Substance: BUDESONIDE
     Indication: ASTHMA
     Dosage: 180 MCG 120 DOSES
     Route: 055
  3. MORPHIN [Suspect]
     Active Substance: MORPHINE
     Indication: NEURALGIA
     Route: 048
  4. MORPHIN [Suspect]
     Active Substance: MORPHINE
     Indication: NEURALGIA
     Route: 042
     Dates: start: 2013
  5. MORPHIN [Suspect]
     Active Substance: MORPHINE
     Indication: NEURALGIA
     Dosage: EVERY SIX HOURS
     Route: 048
  6. NEXIUM [Suspect]
     Active Substance: ESOMEPRAZOLE MAGNESIUM
     Indication: GASTROOESOPHAGEAL REFLUX DISEASE
     Route: 048
  7. NEXIUM [Suspect]
     Active Substance: ESOMEPRAZOLE MAGNESIUM
     Indication: HIATUS HERNIA
     Route: 048
  8. MORPHIN [Suspect]
     Active Substance: MORPHINE
     Indication: PAIN
     Route: 042
     Dates: start: 2013
  9. MORPHIN [Suspect]
     Active Substance: MORPHINE
     Indication: PAIN
     Dosage: EVERY SIX HOURS
     Route: 048
  10. HERCEPTIN [Concomitant]
     Active Substance: TRASTUZUMAB
     Indication: BREAST CANCER
     Route: 042
     Dates: start: 20120830, end: 20140205
  11. ZOFRAN [Concomitant]
     Active Substance: ONDANSETRON HYDROCHLORIDE
  12. FASLODEX [Suspect]
     Active Substance: FULVESTRANT
     Indication: BREAST CANCER
     Route: 030
     Dates: start: 20121226, end: 20130717
  13. FEMARA [Concomitant]
     Active Substance: LETROZOLE
     Indication: BREAST CANCER
     Dates: start: 20120917, end: 20130828
  14. OMEPRAZOLE. [Concomitant]
     Active Substance: OMEPRAZOLE
  15. XGEVA [Concomitant]
     Active Substance: DENOSUMAB
     Indication: BREAST CANCER
     Dates: start: 201308, end: 20130807
  16. MORPHIN [Suspect]
     Active Substance: MORPHINE
     Indication: PAIN
     Route: 048
  17. AZMACORT [Concomitant]
     Active Substance: TRIAMCINOLONE ACETONIDE
     Dosage: 4 PUFFS BID
     Route: 045
  18. HCTZ [Concomitant]
     Active Substance: HYDROCHLOROTHIAZIDE

REACTIONS (19)
  - Dyspepsia [Recovered/Resolved]
  - Back pain [Recovered/Resolved]
  - Constipation [Unknown]
  - Injection site haemorrhage [Unknown]
  - Injection site pain [Recovering/Resolving]
  - Abdominal distension [Recovered/Resolved]
  - Asthma [Unknown]
  - Wrong technique in drug usage process [Unknown]
  - Neck pain [Recovered/Resolved]
  - Injection site bruising [Unknown]
  - Burning sensation [Unknown]
  - Psoriasis [Unknown]
  - Abdominal pain [Recovered/Resolved]
  - Weight bearing difficulty [Recovering/Resolving]
  - Headache [Unknown]
  - Drug ineffective [Unknown]
  - Sciatica [Recovering/Resolving]
  - Chest pain [Recovered/Resolved]
  - Mobility decreased [Unknown]

NARRATIVE: CASE EVENT DATE: 20130613
